FAERS Safety Report 7386546-5 (Version None)
Quarter: 2011Q1

REPORT INFORMATION
  Report Type: 
  Country: None (occurrence: None)
  Receive Date: 20110329
  Receipt Date: 20110329
  Transmission Date: 20110831
  Serious: No
  Sender: FDA-Public Use
  Company Number: None

PATIENT
  Age: 41 Year
  Sex: Male
  Weight: 83.9154 kg

DRUGS (1)
  1. ENBREL [Suspect]
     Indication: PSORIATIC ARTHROPATHY
     Dosage: ONE INJECTION PER WEEK SQ
     Route: 058
     Dates: start: 20070301, end: 20090301

REACTIONS (1)
  - MULTIPLE SCLEROSIS [None]
